FAERS Safety Report 5232344-8 (Version None)
Quarter: 2007Q1

REPORT INFORMATION
  Report Type: 
  Country: None (occurrence: None)
  Receive Date: 20070207
  Receipt Date: 20070125
  Transmission Date: 20070707
  Serious: Yes (Death, Other)
  Sender: FDA-Public Use
  Company Number: PL-AMGEN-UK208715

PATIENT
  Age: 45 Year
  Sex: Female

DRUGS (5)
  1. NEUPOGEN [Suspect]
     Indication: RADIOTHERAPY
  2. DEXAMETHASONE [Concomitant]
     Route: 065
  3. AUGMENTIN '125' [Concomitant]
     Route: 065
  4. TEMOZOLOMIDE [Concomitant]
     Route: 065
  5. FLUCONAZOLE [Concomitant]
     Route: 065

REACTIONS (7)
  - ASPERGILLOSIS [None]
  - BODY TEMPERATURE INCREASED [None]
  - COAGULOPATHY [None]
  - LEUKOPENIA [None]
  - PNEUMONIA [None]
  - RESPIRATORY FAILURE [None]
  - THROMBOCYTOPENIA [None]
